FAERS Safety Report 4806026-8 (Version None)
Quarter: 2005Q4

REPORT INFORMATION
  Report Type: 
  Country: None (occurrence: None)
  Receive Date: 20051019
  Receipt Date: 20050929
  Transmission Date: 20060501
  Serious: Yes (Other)
  Sender: FDA-Public Use
  Company Number: USA050496931

PATIENT
  Age: 56 Year
  Sex: Female

DRUGS (5)
  1. HUMULIN U [Suspect]
     Indication: DIABETES MELLITUS
     Dosage: 60 U/1 IN THE MORNING
  2. HUMULIN-HJUMAN LENTE INSULIN [Suspect]
     Indication: DIABETES MELLITUS
     Dosage: 15 U/1 IN THE MORNING
  3. HUMULIN R [Suspect]
     Indication: DIABETES MELLITUS
     Dosage: 60 U/1 IN THE MORNING
  4. HUMULIN N [Suspect]
     Indication: DIABETES MELLITUS
     Dates: start: 19980101
  5. GLUCOPHAGE [Concomitant]

REACTIONS (5)
  - BLOOD GLUCOSE INCREASED [None]
  - CARDIAC FAILURE [None]
  - DRUG INEFFECTIVE [None]
  - PHARMACEUTICAL PRODUCT COMPLAINT [None]
  - WEIGHT INCREASED [None]
